FAERS Safety Report 6519999-2 (Version None)
Quarter: 2009Q4

REPORT INFORMATION
  Report Type: 
  Country: None (occurrence: None)
  Receive Date: 20091229
  Receipt Date: 20091222
  Transmission Date: 20100525
  Serious: Yes (Hospitalization, Other)
  Sender: FDA-Public Use
  Company Number: US-JNJFOC-20091206558

PATIENT
  Sex: Male
  Weight: 76.2 kg

DRUGS (2)
  1. CONCERTA [Suspect]
     Indication: ATTENTION DEFICIT/HYPERACTIVITY DISORDER
     Route: 048
  2. AMITRIPTYLINE [Concomitant]
     Route: 065

REACTIONS (2)
  - ARTERIOSPASM CORONARY [None]
  - MYOCARDIAL INFARCTION [None]
